FAERS Safety Report 20488381 (Version 1)
Quarter: 2022Q1

REPORT INFORMATION
  Report Type: Spontaneous
  Country: DE (occurrence: DE)
  Receive Date: 20220218
  Receipt Date: 20220218
  Transmission Date: 20220424
  Serious: Yes (Hospitalization, Other)
  Sender: FDA-Public Use
  Company Number: DE-TEVA-2018-DE-926388

PATIENT
  Age: 7 Decade
  Sex: Female

DRUGS (3)
  1. DOCETAXEL [Suspect]
     Active Substance: DOCETAXEL
     Indication: Neoplasm malignant
     Dosage: UNK
     Route: 065
  2. CETUXIMAB [Suspect]
     Active Substance: CETUXIMAB
     Indication: Neoplasm malignant
     Dosage: UNK
     Route: 065
  3. CETUXIMAB [Suspect]
     Active Substance: CETUXIMAB
     Indication: Product used for unknown indication
     Dosage: 500 MILLIGRAM/SQ. METER (EVERY TWO WEEKS)
     Route: 065
     Dates: start: 201601, end: 201604

REACTIONS (3)
  - Bone abscess [Recovered/Resolved]
  - Pharyngeal abscess [Recovered/Resolved]
  - Chest pain [Recovered/Resolved]
